FAERS Safety Report 6416819-1 (Version None)
Quarter: 2009Q4

REPORT INFORMATION
  Report Type: 
  Country: None (occurrence: None)
  Receive Date: 20091022
  Receipt Date: 20091012
  Transmission Date: 20100525
  Serious: Yes (Death, Hospitalization)
  Sender: FDA-Public Use
  Company Number: 2009AC000215

PATIENT
  Age: 60 Year
  Sex: Female

DRUGS (15)
  1. DIGOXIN [Suspect]
     Dosage: PO
     Route: 048
  2. ATROVENT [Concomitant]
  3. FORADIL [Concomitant]
  4. SPIRIVA [Concomitant]
  5. FLONASE [Concomitant]
  6. COUMADIN [Concomitant]
  7. HEPARIN [Concomitant]
  8. LIPITOR [Concomitant]
  9. SINGULAIR [Concomitant]
  10. ADVAIR DISKUS 100/50 [Concomitant]
  11. CARDIZEM [Concomitant]
  12. AVELOX [Concomitant]
  13. HUMIBID [Concomitant]
  14. ALBUTEROL [Concomitant]
  15. MEDROL [Concomitant]

REACTIONS (35)
  - ACUTE RESPIRATORY FAILURE [None]
  - ATELECTASIS [None]
  - ATRIAL FIBRILLATION [None]
  - BACK PAIN [None]
  - BRONCHITIS [None]
  - CANDIDIASIS [None]
  - CARDIAC ARREST [None]
  - CARDIAC FAILURE CONGESTIVE [None]
  - CHEST DISCOMFORT [None]
  - CHEST PAIN [None]
  - CHEST X-RAY ABNORMAL [None]
  - CHRONIC OBSTRUCTIVE PULMONARY DISEASE [None]
  - CONDITION AGGRAVATED [None]
  - COUGH [None]
  - DYSPNOEA [None]
  - ECONOMIC PROBLEM [None]
  - FUNGAL INFECTION [None]
  - HYPERLIPIDAEMIA [None]
  - HYPERTENSION [None]
  - HYPOTENSION [None]
  - INTERNATIONAL NORMALISED RATIO INCREASED [None]
  - LOSS OF EMPLOYMENT [None]
  - MITRAL VALVE REPLACEMENT [None]
  - MITRAL VALVE STENOSIS [None]
  - MULTIPLE INJURIES [None]
  - PAIN [None]
  - PANCREATIC DISORDER [None]
  - PLEURAL EFFUSION [None]
  - PNEUMONIA [None]
  - PROTHROMBIN TIME PROLONGED [None]
  - RENAL FAILURE ACUTE [None]
  - RESPIRATORY DISTRESS [None]
  - SEPSIS [None]
  - SOCIAL AVOIDANT BEHAVIOUR [None]
  - UNEVALUABLE EVENT [None]
